FAERS Safety Report 4708903-5 (Version None)
Quarter: 2005Q3

REPORT INFORMATION
  Report Type: 
  Country: None (occurrence: None)
  Receive Date: 20050705
  Receipt Date: 20050624
  Transmission Date: 20060218
  Serious: Yes (Death, Hospitalization)
  Sender: FDA-Public Use
  Company Number: 2005006514

PATIENT
  Sex: Female

DRUGS (5)
  1. LYRICA [Suspect]
     Indication: ILL-DEFINED DISORDER
     Dosage: ORAL
     Route: 048
  2. SALBUTAMOL [Concomitant]
  3. GYLCERYL TRINITRATE [Concomitant]
  4. CALCIUM CHANNEL BLOCKERS [Concomitant]
  5. SERETIDE EVOHALER (FLUTICASONE PROPIONATE, SALMETEROL [Concomitant]

REACTIONS (3)
  - CARDIOMEGALY [None]
  - LIVER DISORDER [None]
  - OEDEMA [None]
